FAERS Safety Report 8455304-2 (Version None)
Quarter: 2012Q2

REPORT INFORMATION
  Report Type: 
  Country: None (occurrence: None)
  Receive Date: 20120621
  Receipt Date: 20120619
  Transmission Date: 20120825
  Serious: Yes (Hospitalization)
  Sender: FDA-Public Use
  Company Number: IT-SANOFI-AVENTIS-2012SA036891

PATIENT
  Age: 72 Year
  Sex: Female

DRUGS (6)
  1. ELOXATIN [Suspect]
     Route: 042
     Dates: start: 20120101
  2. IRINOTECAN HCL [Suspect]
     Route: 042
     Dates: start: 20120223, end: 20120223
  3. IRINOTECAN HCL [Suspect]
     Route: 042
     Dates: start: 20120101
  4. ELOXATIN [Suspect]
     Route: 042
     Dates: start: 20120112, end: 20120112
  5. ELOXATIN [Suspect]
     Route: 042
     Dates: start: 20120223, end: 20120223
  6. IRINOTECAN HCL [Suspect]
     Route: 042
     Dates: start: 20120112, end: 20120112

REACTIONS (1)
  - ACUTE CORONARY SYNDROME [None]
